FAERS Safety Report 16207895 (Version 2)
Quarter: 2019Q2

REPORT INFORMATION
  Report Type: Spontaneous
  Country: US (occurrence: US)
  Receive Date: 20190417
  Receipt Date: 20190611
  Transmission Date: 20190711
  Serious: No
  Sender: FDA-Public Use
  Company Number: US-PFIZER INC-2019153267

PATIENT
  Age: 65 Year
  Sex: Female
  Weight: 59 kg

DRUGS (6)
  1. GABAPENTIN. [Suspect]
     Active Substance: GABAPENTIN
     Dosage: 300 MG, 2X/DAY (THREE IN THE MORNING AND THREE IN THE EVENING)
     Route: 048
     Dates: start: 2019, end: 2019
  2. GABAPENTIN. [Suspect]
     Active Substance: GABAPENTIN
     Dosage: 300 MG, DAILY
     Dates: start: 2019, end: 2019
  3. GABAPENTIN. [Suspect]
     Active Substance: GABAPENTIN
     Dosage: 300 MG, 2X/DAY
     Route: 048
     Dates: start: 2019, end: 2019
  4. GABAPENTIN. [Suspect]
     Active Substance: GABAPENTIN
     Indication: PAIN IN EXTREMITY
     Dosage: 200 MG, DAILY [200MG THE THIRD DAY, 200MG THE FOURTH DAY]
     Dates: start: 2019, end: 2019
  5. GABAPENTIN. [Suspect]
     Active Substance: GABAPENTIN
     Indication: HERPES ZOSTER
     Dosage: 100 MG, DAILY [100MG THE FIRST DAY, 100MG THE SECOND DAY]
     Route: 048
     Dates: start: 20190328, end: 2019
  6. GABAPENTIN. [Suspect]
     Active Substance: GABAPENTIN
     Dosage: 600 MG, 1X/DAY
     Dates: start: 2019, end: 2019

REACTIONS (2)
  - Off label use [Unknown]
  - Drug ineffective for unapproved indication [Unknown]

NARRATIVE: CASE EVENT DATE: 2019
